FAERS Safety Report 8201785-9 (Version None)
Quarter: 2012Q1

REPORT INFORMATION
  Report Type: 
  Country: None (occurrence: None)
  Receive Date: 20120312
  Receipt Date: 20120227
  Transmission Date: 20120608
  Serious: Yes (Life-Threatening, Hospitalization)
  Sender: FDA-Public Use
  Company Number: DE-ROCHE-799285

PATIENT
  Age: 65 Year
  Sex: Female
  Weight: 61 kg

DRUGS (15)
  1. ACTEMRA [Suspect]
     Route: 042
  2. M-LONG [Concomitant]
  3. METHOTREXATE [Suspect]
     Indication: RHEUMATOID ARTHRITIS
     Route: 048
     Dates: start: 20060831
  4. ACTEMRA [Suspect]
     Route: 042
     Dates: start: 20110815, end: 20110913
  5. CALCIUM [Concomitant]
     Route: 048
  6. VOLTAREN [Concomitant]
  7. MYDOCALM [Concomitant]
  8. FOSAMAX [Concomitant]
  9. PANTOPRAZOLE [Concomitant]
  10. METOPROLOL SUCCINATE [Concomitant]
  11. ACTEMRA [Suspect]
     Indication: RHEUMATOID ARTHRITIS
     Route: 042
  12. FOLSAN [Concomitant]
     Route: 048
     Dates: start: 20061031
  13. SIMVASTATIN [Concomitant]
  14. PREDNISOLONE [Suspect]
     Indication: RHEUMATOID ARTHRITIS
     Route: 048
     Dates: start: 20061130
  15. FUROSEMIDE [Concomitant]

REACTIONS (6)
  - CYTOMEGALOVIRUS COLITIS [None]
  - ACCIDENT [None]
  - PANCYTOPENIA [None]
  - URINARY TRACT INFECTION [None]
  - PELVIC FRACTURE [None]
  - SEPSIS [None]
